FAERS Safety Report 23525331 (Version 1)
Quarter: 2024Q1

REPORT INFORMATION
  Report Type: Spontaneous
  Country: GB (occurrence: GB)
  Receive Date: 20240215
  Receipt Date: 20240215
  Transmission Date: 20240410
  Serious: Yes (Death, Other)
  Sender: FDA-Public Use
  Company Number: GB-ORPHANEU-2024001001

PATIENT

DRUGS (10)
  1. DACTINOMYCIN [Suspect]
     Active Substance: DACTINOMYCIN
     Indication: Rhabdoid tumour
     Dosage: 3 CYCLES
  2. DACTINOMYCIN [Suspect]
     Active Substance: DACTINOMYCIN
     Indication: Off label use
  3. IFOSFAMIDE [Suspect]
     Active Substance: IFOSFAMIDE
     Indication: Rhabdoid tumour
     Dosage: 2 CYCLES
  4. CARBOPLATIN [Suspect]
     Active Substance: CARBOPLATIN
     Indication: Rhabdoid tumour
     Dosage: 2 CYCLES
  5. ETOPOSIDE [Suspect]
     Active Substance: ETOPOSIDE
     Indication: Rhabdoid tumour
     Dosage: 2 CYCLES
  6. DOXORUBICIN [Suspect]
     Active Substance: DOXORUBICIN
     Indication: Rhabdoid tumour
     Dosage: 2 CYCLES
  7. VINCRISTINE [Suspect]
     Active Substance: VINCRISTINE
     Indication: Rhabdoid tumour
     Dosage: THREE CYCLE
  8. CYCLOPHOSPHAMIDE [Suspect]
     Active Substance: CYCLOPHOSPHAMIDE
     Indication: Rhabdoid tumour
     Dosage: 3 CYCLES
  9. METHOTREXATE [Suspect]
     Active Substance: METHOTREXATE
     Indication: Rhabdoid tumour
     Dosage: 3 CYCLES
     Route: 037
  10. TOPOTECAN [Suspect]
     Active Substance: TOPOTECAN HYDROCHLORIDE
     Indication: Rhabdoid tumour

REACTIONS (3)
  - Disease progression [Fatal]
  - Neutropenic sepsis [Unknown]
  - Off label use [Recovered/Resolved]
